FAERS Safety Report 7130265-7 (Version None)
Quarter: 2010Q4

REPORT INFORMATION
  Report Type: 
  Country: None (occurrence: None)
  Receive Date: 20101201
  Receipt Date: 20101124
  Transmission Date: 20110411
  Serious: Yes (Other)
  Sender: FDA-Public Use
  Company Number: PHHY2010FR80387

PATIENT
  Age: 56 Year
  Sex: Male

DRUGS (2)
  1. STALEVO 100 [Suspect]
     Indication: PARKINSON'S DISEASE
     Dosage: UNK
  2. REQUIP [Concomitant]
     Dosage: UNK

REACTIONS (2)
  - LIBIDO INCREASED [None]
  - OBSESSIVE THOUGHTS [None]
